FAERS Safety Report 4300472-7 (Version None)
Quarter: 2004Q1

REPORT INFORMATION
  Report Type: 
  Country: None (occurrence: None)
  Receive Date: 20040217
  Receipt Date: 20040204
  Transmission Date: 20041129
  Serious: Yes (Death, Life-Threatening, Hospitalization)
  Sender: FDA-Public Use
  Company Number: FR-JNJFOC-20040201242

PATIENT
  Age: 69 Year
  Sex: Female

DRUGS (5)
  1. HALDOL [Suspect]
     Dosage: 10 MG, IN 1 DAY, ORAL
     Route: 048
     Dates: end: 20040112
  2. SINTROM [Suspect]
     Dosage: 4 MG, ORAL
     Route: 048
     Dates: start: 20031229, end: 20040112
  3. AUGMENTIN [Suspect]
     Dosage: 3 G, IN 1 DAY
     Dates: start: 20031226, end: 20040106
  4. FRAXIPARINE (HEPARIN-FRACTION, CALCIUM SALT) [Suspect]
     Dosage: 0.6 ML, 2 IN 1 DAY, SUBCUTANEOUS
     Route: 058
     Dates: start: 20031226, end: 20040112
  5. PAROXETINE HCL [Suspect]
     Dosage: 40 MG, IN 1 DAY, ORAL
     Route: 048
     Dates: end: 20040112

REACTIONS (5)
  - ABDOMINAL DISTENSION [None]
  - FLATULENCE [None]
  - GASTROINTESTINAL MOTILITY DISORDER [None]
  - INTESTINAL DILATATION [None]
  - TACHYCARDIA [None]
